FAERS Safety Report 24870491 (Version 1)
Quarter: 2025Q1

REPORT INFORMATION
  Report Type: Report from Study
  Country: CA (occurrence: CA)
  Receive Date: 20250121
  Receipt Date: 20250121
  Transmission Date: 20250409
  Serious: No
  Sender: JOHNSON AND JOHNSON
  Company Number: CA-JNJFOC-20241288851

PATIENT
  Age: 54 Year
  Sex: Male

DRUGS (1)
  1. SIMPONI [Suspect]
     Active Substance: GOLIMUMAB
     Indication: Product used for unknown indication
     Route: 058
     Dates: start: 20170518

REACTIONS (6)
  - Pain [Unknown]
  - Swelling [Unknown]
  - Discomfort [Unknown]
  - Underdose [Unknown]
  - Device deployment issue [Unknown]
  - Needle issue [Unknown]
